FAERS Safety Report 6824297-3 (Version None)
Quarter: 2010Q3

REPORT INFORMATION
  Report Type: 
  Country: None (occurrence: None)
  Receive Date: 20100708
  Receipt Date: 20061018
  Transmission Date: 20110219
  Serious: No
  Sender: FDA-Public Use
  Company Number: US-PFIZER INC-2006128098

PATIENT
  Sex: Male
  Weight: 95.25 kg

DRUGS (4)
  1. CHANTIX [Suspect]
     Indication: SMOKING CESSATION THERAPY
     Dates: start: 20061004
  2. LISINOPRIL [Concomitant]
  3. ZOCOR [Concomitant]
  4. ALL OTHER THERAPEUTIC PRODUCTS [Concomitant]

REACTIONS (6)
  - ARTHRALGIA [None]
  - FLATULENCE [None]
  - NIGHTMARE [None]
  - PAIN IN EXTREMITY [None]
  - RESTLESSNESS [None]
  - SLEEP DISORDER [None]
